FAERS Safety Report 23747769 (Version 1)
Quarter: 2024Q2

REPORT INFORMATION
  Report Type: Spontaneous
  Country: US (occurrence: None)
  Receive Date: 20240416
  Receipt Date: 20240416
  Transmission Date: 20240716
  Serious: No
  Sender: FDA-Public Use
  Company Number: None

PATIENT
  Age: 10 Year
  Sex: Female
  Weight: 40.5 kg

DRUGS (8)
  1. CYCLOPHOSPHAMIDE [Suspect]
     Active Substance: CYCLOPHOSPHAMIDE
  2. CYTARABINE [Suspect]
     Active Substance: CYTARABINE
  3. DAUNORUBICIN [Suspect]
     Active Substance: DAUNORUBICIN
  4. MERCAPTOPURINE [Suspect]
     Active Substance: MERCAPTOPURINE
  5. METHOTREXATE [Suspect]
     Active Substance: METHOTREXATE
  6. PREDNISONE [Suspect]
     Active Substance: PREDNISONE
  7. GLEEVEC [Suspect]
     Active Substance: IMATINIB MESYLATE
  8. VINCRISTINE SULFATE [Suspect]
     Active Substance: VINCRISTINE SULFATE

REACTIONS (15)
  - Pneumonia [None]
  - Neutropenia [None]
  - Pyrexia [None]
  - Inappropriate schedule of product administration [None]
  - Pneumocystis jirovecii pneumonia [None]
  - Tachypnoea [None]
  - Respiratory distress [None]
  - Bronchial wall thickening [None]
  - Lung infiltration [None]
  - Chest X-ray abnormal [None]
  - Total lung capacity decreased [None]
  - Bacterial infection [None]
  - Lung opacity [None]
  - Computerised tomogram kidney abnormal [None]
  - Respiratory tract procedural complication [None]

NARRATIVE: CASE EVENT DATE: 20240323
